FAERS Safety Report 7802583-8 (Version None)
Quarter: 2011Q4

REPORT INFORMATION
  Report Type: 
  Country: None (occurrence: None)
  Receive Date: 20111007
  Receipt Date: 20110926
  Transmission Date: 20120403
  Serious: Yes (Hospitalization, Other)
  Sender: FDA-Public Use
  Company Number: GB-ROCHE-800884

PATIENT
  Age: 33 Year
  Sex: Female

DRUGS (7)
  1. DEXAMETHASONE [Concomitant]
     Indication: ANTIEMETIC SUPPORTIVE CARE
     Route: 048
     Dates: start: 20100907, end: 20101010
  2. TRANEXAMIC ACID [Suspect]
     Indication: PRODUCT USED FOR UNKNOWN INDICATION
     Route: 048
     Dates: start: 20100922, end: 20100928
  3. NORETHINDRONE [Concomitant]
     Indication: PRODUCT USED FOR UNKNOWN INDICATION
     Route: 048
     Dates: start: 20100922, end: 20100928
  4. RITUXIMAB [Suspect]
     Indication: HAEMATOLOGY TEST ABNORMAL
     Route: 042
     Dates: start: 20100917, end: 20100924
  5. LANSOPRAZOLE [Suspect]
     Indication: GASTROOESOPHAGEAL REFLUX PROPHYLAXIS
     Dosage: FREQUENCY: 1 DAY
     Route: 048
     Dates: start: 20100907, end: 20100928
  6. IMMUNE GLOBULIN IV NOS [Suspect]
     Indication: HAEMATOLOGY TEST ABNORMAL
     Route: 041
     Dates: start: 20100922, end: 20100923
  7. ROMIPLOSTIM [Suspect]
     Indication: IDIOPATHIC THROMBOCYTOPENIC PURPURA
     Route: 058
     Dates: start: 20100920, end: 20100920

REACTIONS (7)
  - RECTAL HAEMORRHAGE [None]
  - RASH ERYTHEMATOUS [None]
  - MELAENA [None]
  - RASH MACULO-PAPULAR [None]
  - PURPURA [None]
  - HAEMOGLOBIN DECREASED [None]
  - VAGINAL HAEMORRHAGE [None]
